FAERS Safety Report 6067399-4 (Version None)
Quarter: 2009Q1

REPORT INFORMATION
  Report Type: 
  Country: None (occurrence: None)
  Receive Date: 20090205
  Receipt Date: 20090127
  Transmission Date: 20090719
  Serious: Yes (Other)
  Sender: FDA-Public Use
  Company Number: US-ELI_LILLY_AND_COMPANY-US200901005001

PATIENT
  Sex: Male

DRUGS (4)
  1. HUMULIN R [Suspect]
     Dosage: 8 U, EACH MORNING
  2. HUMULIN R [Suspect]
     Dosage: 7 U, UNK
  3. HUMULIN R [Suspect]
     Dosage: 10 U, EACH EVENING
  4. HUMULIN N [Suspect]
     Dosage: 8 U, EACH EVENING

REACTIONS (5)
  - BLINDNESS UNILATERAL [None]
  - BLOOD GLUCOSE INCREASED [None]
  - DRUG INEFFECTIVE [None]
  - RETINAL DISORDER [None]
  - VISUAL ACUITY REDUCED [None]
